FAERS Safety Report 18528774 (Version 1)
Quarter: 2020Q4

REPORT INFORMATION
  Report Type: Spontaneous
  Country: JP (occurrence: JP)
  Receive Date: 20201120
  Receipt Date: 20201120
  Transmission Date: 20210114
  Serious: Yes (Death, Other)
  Sender: FDA-Public Use
  Company Number: JP-SEATTLE GENETICS-2020SGN03198

PATIENT
  Age: 8 Decade
  Sex: Male

DRUGS (1)
  1. ADCETRIS [Suspect]
     Active Substance: BRENTUXIMAB VEDOTIN
     Indication: PERIPHERAL T-CELL LYMPHOMA UNSPECIFIED
     Dosage: 1.2 MILLIGRAM/KILOGRAM
     Route: 065
     Dates: start: 20200402

REACTIONS (3)
  - Peripheral T-cell lymphoma unspecified [Fatal]
  - Condition aggravated [Fatal]
  - Herpes zoster [Recovering/Resolving]

NARRATIVE: CASE EVENT DATE: 202010
